FAERS Safety Report 16202192 (Version 1)
Quarter: 2019Q2

REPORT INFORMATION
  Report Type: Report from Study
  Country: GB (occurrence: GB)
  Receive Date: 20190416
  Receipt Date: 20190416
  Transmission Date: 20190711
  Serious: Yes (Other)
  Sender: FDA-Public Use
  Company Number: GB-EMD SERONO-9050707

PATIENT
  Age: 27 Year
  Sex: Female

DRUGS (1)
  1. MAVENCLAD [Suspect]
     Active Substance: CLADRIBINE
     Indication: MULTIPLE SCLEROSIS
     Dosage: FIRST WEEK THERAPY: ONE TABLET AS DIRECTED.
     Route: 048
     Dates: start: 20181015

REACTIONS (4)
  - Vision blurred [Recovered/Resolved]
  - Lower respiratory tract infection [Recovering/Resolving]
  - Asthenopia [Recovered/Resolved]
  - Nasopharyngitis [Unknown]

NARRATIVE: CASE EVENT DATE: 201810
